FAERS Safety Report 4945695-9 (Version None)
Quarter: 2006Q1

REPORT INFORMATION
  Report Type: 
  Country: None (occurrence: None)
  Receive Date: 20060316
  Receipt Date: 20060310
  Transmission Date: 20060701
  Serious: Yes (Hospitalization)
  Sender: FDA-Public Use
  Company Number: FR-AVENTIS-200610952FR

PATIENT
  Age: 50 Year
  Sex: Female

DRUGS (9)
  1. HYDROCORTISONE [Suspect]
     Route: 048
     Dates: end: 20051223
  2. SORIATANE [Suspect]
     Route: 048
     Dates: start: 20051219, end: 20051223
  3. SORIATANE [Suspect]
     Route: 048
     Dates: start: 20051224, end: 20051227
  4. DAFALGAN [Suspect]
     Route: 048
     Dates: end: 20051227
  5. SMECTA [Suspect]
     Route: 048
     Dates: end: 20051229
  6. AUGMENTIN '125' [Suspect]
     Route: 048
     Dates: start: 20051222, end: 20051223
  7. AUGMENTIN '125' [Suspect]
     Route: 048
     Dates: start: 20051223, end: 20051225
  8. AUGMENTIN '125' [Suspect]
     Route: 048
     Dates: start: 20051226, end: 20051228
  9. SPASFON [Suspect]
     Route: 048
     Dates: end: 20051229

REACTIONS (3)
  - ALANINE AMINOTRANSFERASE INCREASED [None]
  - ASPARTATE AMINOTRANSFERASE INCREASED [None]
  - HEPATIC ENZYME INCREASED [None]
